FAERS Safety Report 8348252-X (Version None)
Quarter: 2012Q2

REPORT INFORMATION
  Report Type: 
  Country: None (occurrence: None)
  Receive Date: 20120509
  Receipt Date: 20120501
  Transmission Date: 20120825
  Serious: Yes (Hospitalization)
  Sender: FDA-Public Use
  Company Number: JP-VERTEX PHARMACEUTICALS INC.-AE-2012-006463

PATIENT
  Age: 63 Year
  Sex: Female

DRUGS (7)
  1. ENALAPRIL MALEATE [Concomitant]
     Route: 048
  2. RIBAVIRIN [Concomitant]
     Route: 048
     Dates: start: 20120403, end: 20120424
  3. PEGINTRFERON ALFA-2B [Concomitant]
     Indication: HEPATITIS C
     Route: 051
     Dates: end: 20120424
  4. RIBAVIRIN [Concomitant]
     Indication: HEPATITIS C
     Route: 048
     Dates: end: 20120402
  5. TELAVIC (TELAPREVIR) [Suspect]
     Indication: HEPATITIS C
     Route: 048
     Dates: start: 20120313, end: 20120424
  6. AMLODIPINE [Concomitant]
     Route: 048
  7. LEVOTHYROXINE SODIUM [Concomitant]
     Route: 048

REACTIONS (1)
  - PYELONEPHRITIS [None]
